FAERS Safety Report 5519629-2 (Version None)
Quarter: 2007Q4

REPORT INFORMATION
  Report Type: 
  Country: None (occurrence: None)
  Receive Date: 20071114
  Receipt Date: 20070531
  Transmission Date: 20080405
  Serious: Yes (Hospitalization, Other)
  Sender: FDA-Public Use
  Company Number: 2007US002778

PATIENT
  Age: 2 Year
  Sex: Female
  Weight: 12.2 kg

DRUGS (16)
  1. PROGRAF [Suspect]
     Indication: RENAL TRANSPLANT
     Dates: start: 20060209
  2. ZENAPAX [Suspect]
     Indication: RENAL TRANSPLANT
     Dosage: 10 MG, IV NOS; 10 MG, IV NOS; 11 MG, IV NOS; 12 MG, IV NOS; 12 MG, IV NOS; 12 MG, IV NOS
     Route: 042
     Dates: start: 20060209, end: 20060209
  3. ZENAPAX [Suspect]
     Indication: RENAL TRANSPLANT
     Dosage: 10 MG, IV NOS; 10 MG, IV NOS; 11 MG, IV NOS; 12 MG, IV NOS; 12 MG, IV NOS; 12 MG, IV NOS
     Route: 042
     Dates: start: 20060212, end: 20060212
  4. ZENAPAX [Suspect]
     Indication: RENAL TRANSPLANT
     Dosage: 10 MG, IV NOS; 10 MG, IV NOS; 11 MG, IV NOS; 12 MG, IV NOS; 12 MG, IV NOS; 12 MG, IV NOS
     Route: 042
     Dates: start: 20060227, end: 20060227
  5. ZENAPAX [Suspect]
     Indication: RENAL TRANSPLANT
     Dosage: 10 MG, IV NOS; 10 MG, IV NOS; 11 MG, IV NOS; 12 MG, IV NOS; 12 MG, IV NOS; 12 MG, IV NOS
     Route: 042
     Dates: start: 20060327, end: 20060327
  6. ZENAPAX [Suspect]
     Indication: RENAL TRANSPLANT
     Dosage: 10 MG, IV NOS; 10 MG, IV NOS; 11 MG, IV NOS; 12 MG, IV NOS; 12 MG, IV NOS; 12 MG, IV NOS
     Route: 042
     Dates: start: 20060406, end: 20060406
  7. ZENAPAX [Suspect]
     Indication: RENAL TRANSPLANT
     Dosage: 10 MG, IV NOS; 10 MG, IV NOS; 11 MG, IV NOS; 12 MG, IV NOS; 12 MG, IV NOS; 12 MG, IV NOS
     Route: 042
     Dates: start: 20060309, end: 20070309
  8. ACLOVATE (ALCLOMETASONE DIPROPIONATE) [Concomitant]
  9. IMODIUM [Concomitant]
  10. BICITRA (SODIUM CITRATE, CITRIC ACID) [Concomitant]
  11. FURADANTIN [Concomitant]
  12. PREVACID [Concomitant]
  13. LIDOCAINE W/PRILOCAINE (LIDOCAINE, PRILOCAINE) [Concomitant]
  14. NYSTATIN [Concomitant]
  15. LISINOPRIL [Concomitant]
  16. MACRODANTIN [Concomitant]

REACTIONS (1)
  - POST PROCEDURAL HAEMORRHAGE [None]
